FAERS Safety Report 10034083 (Version 4)
Quarter: 2014Q2

REPORT INFORMATION
  Report Type: Spontaneous
  Country: IT (occurrence: None)
  Receive Date: 20140320
  Receipt Date: 20140411
  Transmission Date: 20141212
  Serious: Yes (Hospitalization)
  Sender: FDA-Public Use
  Company Number: AUR-APL-2014-02410

PATIENT
  Age: 73 Year
  Sex: Female

DRUGS (7)
  1. CONGESCOR (BISOPROLOL) [Concomitant]
  2. HUMALOG (INSULIN LISPRO) [Concomitant]
  3. LASIX (FUROSEMIDE) [Concomitant]
  4. DIAMOX (ACETAZOLAMIDE) [Concomitant]
  5. TORVAST (ATORVASTATIN CALCIUM) [Concomitant]
  6. RAMIPRIL [Suspect]
     Indication: HYPERTENSION
     Dosage: (1.25 MG, 1 D), ORAL
     Route: 048
     Dates: start: 20130801, end: 20140224
  7. COUMADIN (WARFARIN SODIUM) [Concomitant]

REACTIONS (7)
  - Tongue oedema [None]
  - Epiglottic oedema [None]
  - Metabolic acidosis [None]
  - Dyspnoea [None]
  - Blood pressure increased [None]
  - Angioedema [None]
  - Blood pressure increased [None]
